FAERS Safety Report 25411401 (Version 3)
Quarter: 2025Q2

REPORT INFORMATION
  Report Type: Spontaneous
  Country: US (occurrence: US)
  Receive Date: 20250609
  Receipt Date: 20250626
  Transmission Date: 20250716
  Serious: No
  Sender: ABBVIE
  Company Number: US-ABBVIE-6311105

PATIENT
  Sex: Female
  Weight: 126.09 kg

DRUGS (4)
  1. SYNTHROID [Suspect]
     Active Substance: LEVOTHYROXINE SODIUM
     Indication: Hypothyroidism
     Dosage: FORM STRENGTH: 0.112 MILLIGRAM
     Route: 048
     Dates: start: 1994
  2. SYNTHROID [Suspect]
     Active Substance: LEVOTHYROXINE SODIUM
     Indication: Hypothyroidism
     Route: 048
  3. LEVOTHYROXINE [Suspect]
     Active Substance: LEVOTHYROXINE
     Indication: Hypothyroidism
     Route: 048
     Dates: start: 200206, end: 200212
  4. VITAMIN D [Concomitant]
     Active Substance: VITAMIN D NOS
     Indication: Vitamin supplementation

REACTIONS (19)
  - Brain fog [Recovered/Resolved]
  - Paraesthesia [Recovered/Resolved]
  - Muscle disorder [Recovered/Resolved]
  - Adverse drug reaction [Unknown]
  - Nervousness [Unknown]
  - Fatigue [Recovered/Resolved]
  - Thyroid function test abnormal [Unknown]
  - Palpitations [Recovered/Resolved]
  - Product dispensing error [Unknown]
  - Product dispensing error [Recovered/Resolved]
  - Weight decreased [Recovered/Resolved]
  - Tremor [Recovered/Resolved]
  - Arthralgia [Recovered/Resolved]
  - Grip strength decreased [Recovered/Resolved]
  - Asthenia [Recovered/Resolved]
  - Hypoaesthesia [Recovered/Resolved]
  - Myalgia [Recovered/Resolved]
  - Inflammation [Recovered/Resolved]
  - Feeling abnormal [Unknown]

NARRATIVE: CASE EVENT DATE: 20011201
